FAERS Safety Report 5443495-7 (Version None)
Quarter: 2007Q3

REPORT INFORMATION
  Report Type: 
  Country: None (occurrence: None)
  Receive Date: 20070905
  Receipt Date: 20070824
  Transmission Date: 20080115
  Serious: Yes (Other)
  Sender: FDA-Public Use
  Company Number: DE-ROCHE-508872

PATIENT
  Age: 93 Year
  Sex: Male

DRUGS (2)
  1. BONIVA [Suspect]
     Indication: DRUG USE FOR UNKNOWN INDICATION
     Dosage: DRUG NAME REPORTED: BONVIVA 3 MG, STRENGTH + FORMULATION REPORTED: 3 MG/ 3 ML SYRINGE
     Route: 042
     Dates: start: 20070615
  2. MARCUMAR [Suspect]
     Indication: ARRHYTHMIA
     Route: 065
     Dates: start: 20040101

REACTIONS (2)
  - BACK PAIN [None]
  - PROTHROMBIN TIME SHORTENED [None]
